FAERS Safety Report 8899483 (Version 1)
Quarter: 2012Q4

REPORT INFORMATION
  Report Type: 
  Country: BR (occurrence: BR)
  Receive Date: 20121109
  Receipt Date: 20121109
  Transmission Date: 20130627
  Serious: Yes (Other)
  Sender: FDA-Public Use
  Company Number: BR-JNJFOC-20121102288

PATIENT
  Age: 36 Year
  Sex: Male
  Weight: 114.1 kg

DRUGS (5)
  1. REMICADE [Suspect]
     Indication: CROHN^S DISEASE
     Route: 042
     Dates: start: 20110728
  2. REMICADE [Suspect]
     Indication: CROHN^S DISEASE
     Route: 042
     Dates: start: 20121030
  3. MESALAZINE [Concomitant]
     Route: 048
  4. OMEPRAZOLE [Concomitant]
     Route: 048
  5. FOLIC ACID [Concomitant]
     Route: 048

REACTIONS (5)
  - Pruritus [Recovered/Resolved]
  - Blood pressure increased [Recovered/Resolved]
  - Heart rate decreased [Recovered/Resolved]
  - Body temperature decreased [Recovered/Resolved]
  - Infusion related reaction [Recovered/Resolved]
